FAERS Safety Report 4969015-9 (Version None)
Quarter: 2006Q2

REPORT INFORMATION
  Report Type: 
  Country: None (occurrence: None)
  Receive Date: 20060411
  Receipt Date: 20051114
  Transmission Date: 20061013
  Serious: Yes (Hospitalization)
  Sender: FDA-Public Use
  Company Number: US-MERCK-0511USA02780

PATIENT
  Age: 83 Year
  Sex: Female
  Weight: 77 kg

DRUGS (15)
  1. VIOXX [Suspect]
     Route: 048
  2. XANAX [Concomitant]
     Route: 065
  3. ZANTAC [Concomitant]
     Route: 065
  4. TOPROL-XL [Concomitant]
     Route: 065
  5. LOTREL [Concomitant]
     Route: 065
  6. LEXAPRO [Concomitant]
     Route: 065
  7. K-TAB [Concomitant]
     Route: 065
  8. CELEBREX [Concomitant]
     Route: 065
  9. ESTRACE [Concomitant]
     Route: 065
  10. GLUCOSAMINE [Concomitant]
     Route: 065
  11. MECLIZINE [Concomitant]
     Route: 048
  12. TALACEN [Concomitant]
     Route: 048
  13. LIBRAX CAPSULES [Concomitant]
     Route: 048
  14. CENTRUM SILVER [Concomitant]
     Route: 065
  15. OCUVITE [Concomitant]
     Route: 065

REACTIONS (13)
  - ANAEMIA [None]
  - ANXIETY [None]
  - CEREBROVASCULAR ACCIDENT [None]
  - DEEP VEIN THROMBOSIS [None]
  - DYSPHASIA [None]
  - EMOTIONAL DISTRESS [None]
  - HYPONATRAEMIA [None]
  - INJURY [None]
  - PAIN [None]
  - PNEUMONITIS [None]
  - PULMONARY EMBOLISM [None]
  - RENAL FAILURE [None]
  - URINARY TRACT INFECTION [None]
